FAERS Safety Report 11785694 (Version 1)
Quarter: 2015Q4

REPORT INFORMATION
  Report Type: Spontaneous
  Country: GB (occurrence: GB)
  Receive Date: 20151130
  Receipt Date: 20151130
  Transmission Date: 20160305
  Serious: Yes (Other)
  Sender: FDA-Public Use
  Company Number: GB-BAYER-2015-473127

PATIENT
  Age: 27 Year
  Sex: Female

DRUGS (1)
  1. YASMIN ED, FILM-COATED TABLETS, 0.03 MG/3 MG [Suspect]
     Active Substance: DROSPIRENONE\ETHINYL ESTRADIOL
     Route: 048

REACTIONS (1)
  - Basedow^s disease [None]
